FAERS Safety Report 14430468 (Version 1)
Quarter: 2018Q1

REPORT INFORMATION
  Report Type: Spontaneous
  Country: RO (occurrence: RO)
  Receive Date: 20180124
  Receipt Date: 20180124
  Transmission Date: 20180509
  Serious: Yes (Hospitalization)
  Sender: FDA-Public Use
  Company Number: RO-ABBVIE-18S-135-2229069-00

PATIENT
  Age: 68 Year
  Sex: Female

DRUGS (7)
  1. EXVIERA [Suspect]
     Active Substance: DASABUVIR
     Indication: CHRONIC HEPATITIS C
     Dosage: 2 TABLETS/DAY
     Route: 048
     Dates: start: 20171027
  2. INSULIN [Concomitant]
     Active Substance: INSULIN NOS
     Indication: DIABETES MELLITUS
     Route: 058
  3. VIEKIRAX [Suspect]
     Active Substance: OMBITASVIR\PARITAPREVIR\RITONAVIR
     Indication: CHRONIC HEPATITIS C
     Dosage: 2 TABLETS/DAY
     Route: 048
     Dates: start: 20171027
  4. METOPROLOL. [Concomitant]
     Active Substance: METOPROLOL
     Indication: HYPERTENSION
     Dosage: 50 MG/DAY
     Route: 048
  5. NITROMINT [Concomitant]
     Indication: MYOCARDIAL ISCHAEMIA
     Route: 048
  6. INDAPAMIDE. [Concomitant]
     Active Substance: INDAPAMIDE
     Indication: HYPERTENSION
     Dosage: 1 TABLET/DAY
     Route: 048
  7. LERIDIP 20 [Concomitant]
     Indication: HYPERTENSION
     Route: 048

REACTIONS (4)
  - Dry mouth [Recovered/Resolved]
  - Anxiety [Recovered/Resolved]
  - Pruritus [Recovered/Resolved]
  - Vulvovaginal dryness [Recovered/Resolved]

NARRATIVE: CASE EVENT DATE: 20171101
